FAERS Safety Report 26087886 (Version 2)
Quarter: 2025Q4

REPORT INFORMATION
  Report Type: Report from Study
  Country: US (occurrence: US)
  Receive Date: 20251125
  Receipt Date: 20251226
  Transmission Date: 20260118
  Serious: Yes (Other)
  Sender: ALEXION PHARMACEUTICALS
  Company Number: US-AstraZeneca-CH-00997558A

PATIENT
  Age: 51 Year
  Sex: Female

DRUGS (1)
  1. RAVULIZUMAB [Suspect]
     Active Substance: RAVULIZUMAB
     Indication: Atypical haemolytic uraemic syndrome
     Dosage: UNK, Q8W
     Route: 065

REACTIONS (8)
  - Renal failure [Unknown]
  - Neoplasm malignant [Unknown]
  - Renal vascular thrombosis [Unknown]
  - Blindness [Unknown]
  - Fatigue [Unknown]
  - Eye disorder [Unknown]
  - Illness [Unknown]
  - Insomnia [Unknown]

NARRATIVE: CASE EVENT DATE: 20190101
